FAERS Safety Report 4793671-1 (Version None)
Quarter: 2005Q4

REPORT INFORMATION
  Report Type: 
  Country: None (occurrence: None)
  Receive Date: 20051006
  Receipt Date: 20050927
  Transmission Date: 20060501
  Serious: Yes (Death, Hospitalization, Other)
  Sender: FDA-Public Use
  Company Number: 2005134816

PATIENT
  Age: 80 Year
  Sex: Female
  Weight: 72.5755 kg

DRUGS (1)
  1. CELEBREX [Suspect]
     Indication: PAIN
     Dates: start: 20030101, end: 20040101

REACTIONS (6)
  - BILIARY TRACT DISORDER [None]
  - BLOOD PRESSURE DECREASED [None]
  - HEPATIC NEOPLASM MALIGNANT [None]
  - JAUNDICE [None]
  - PANCREATIC CARCINOMA [None]
  - WEIGHT DECREASED [None]
